FAERS Safety Report 4316347-3 (Version None)
Quarter: 2004Q1

REPORT INFORMATION
  Report Type: 
  Country: None (occurrence: None)
  Receive Date: 20040311
  Receipt Date: 20040227
  Transmission Date: 20041129
  Serious: Yes (Hospitalization)
  Sender: FDA-Public Use
  Company Number: HQWYE467402MAR04

PATIENT
  Age: 51 Year
  Sex: Male

DRUGS (6)
  1. EFFEXOR XR [Suspect]
     Indication: DEPRESSION
     Dosage: SEE IMAGE
     Route: 048
     Dates: start: 20030201, end: 20040213
  2. EFFEXOR XR [Suspect]
     Indication: DEPRESSION
     Dosage: SEE IMAGE
     Route: 048
     Dates: start: 20040216
  3. INDERAL [Suspect]
     Indication: HYPERTENSION
     Dosage: 30 MG 1X PER 1 DAY
     Route: 048
  4. ZOCOR [Concomitant]
  5. ZESTRIL [Concomitant]
  6. ACETYLSALICYLIC ACID SRT [Concomitant]

REACTIONS (6)
  - DIABETES MELLITUS [None]
  - DRY MOUTH [None]
  - METABOLIC SYNDROME [None]
  - MYOCARDIAL INFARCTION [None]
  - NASAL DRYNESS [None]
  - SLEEP APNOEA SYNDROME [None]
